FAERS Safety Report 8468111 (Version 3)
Quarter: 2012Q4

REPORT INFORMATION
  Report Type: 
  Country: TR (occurrence: TR)
  Receive Date: 20120320
  Receipt Date: 20121123
  Transmission Date: 20130627
  Serious: Yes (Other)
  Sender: FDA-Public Use
  Company Number: TR-AMGEN-TURSP2012015455

PATIENT
  Age: 54 Year
  Sex: Male

DRUGS (3)
  1. ENBREL [Suspect]
     Indication: ANKYLOSING SPONDYLITIS
     Dosage: 25 mg, 2x/week
     Route: 058
     Dates: start: 201207
  2. ENBREL [Suspect]
     Dosage: 25 mg, 2x/week
     Route: 058
     Dates: start: 200909, end: 20110907
  3. ENBREL [Suspect]
     Dosage: 50 mg, weekly
     Route: 058
     Dates: start: 20110907, end: 20111226

REACTIONS (4)
  - Neoplasm malignant [Recovering/Resolving]
  - Mental disorder [Not Recovered/Not Resolved]
  - Tension [Recovered/Resolved]
  - Muscle spasms [Not Recovered/Not Resolved]
